FAERS Safety Report 4307110-8 (Version None)
Quarter: 2004Q1

REPORT INFORMATION
  Report Type: 
  Country: None (occurrence: None)
  Receive Date: 20040225
  Receipt Date: 20040211
  Transmission Date: 20041129
  Serious: Yes (Hospitalization)
  Sender: FDA-Public Use
  Company Number: USA040156977

PATIENT
  Age: 74 Year
  Sex: Female
  Weight: 58 kg

DRUGS (12)
  1. EVISTA [Suspect]
     Indication: OSTEOPOROSIS
     Dosage: 60 MG/DAY
     Dates: start: 20010815
  2. FORTEO [Suspect]
     Indication: OSTEOPOROSIS
     Dosage: 20 UG/DAY
     Dates: start: 20040114, end: 20040115
  3. ALTACE [Concomitant]
  4. ACTONEL [Concomitant]
  5. ALLEGRA [Concomitant]
  6. TOPROL-XL [Concomitant]
  7. LASIX [Concomitant]
  8. DONNATAL [Concomitant]
  9. KCL (POTASSIUM CHLORIDE) [Concomitant]
  10. PLAVIX [Concomitant]
  11. CALCIUM [Concomitant]
  12. MULTIVITAMIN [Concomitant]

REACTIONS (8)
  - ACUTE MYOCARDIAL INFARCTION [None]
  - BLOOD PRESSURE DECREASED [None]
  - DIZZINESS [None]
  - ENZYME ABNORMALITY [None]
  - FATIGUE [None]
  - HEART RATE INCREASED [None]
  - PALPITATIONS [None]
  - SLUGGISHNESS [None]
